FAERS Safety Report 5403776-X (Version None)
Quarter: 2007Q3

REPORT INFORMATION
  Report Type: 
  Country: None (occurrence: None)
  Receive Date: 20070731
  Receipt Date: 20070731
  Transmission Date: 20080115
  Serious: Yes (Hospitalization)
  Sender: FDA-Public Use
  Company Number: None

PATIENT
  Age: 62 Year
  Sex: Female

DRUGS (1)
  1. FERRLECIT [Suspect]
     Dosage: 250MG X1 IV    X 1 DOSE
     Route: 042
     Dates: start: 20060814

REACTIONS (7)
  - ASTHENIA [None]
  - BLOOD PRESSURE DECREASED [None]
  - BURNING SENSATION [None]
  - COLD SWEAT [None]
  - LOSS OF CONSCIOUSNESS [None]
  - NAUSEA [None]
  - SHOCK [None]
